FAERS Safety Report 4753381-3 (Version None)
Quarter: 2005Q3

REPORT INFORMATION
  Report Type: 
  Country: None (occurrence: None)
  Receive Date: 20050823
  Receipt Date: 20050809
  Transmission Date: 20060218
  Serious: Yes (Other)
  Sender: FDA-Public Use
  Company Number: USA0508104951

PATIENT
  Sex: Male

DRUGS (2)
  1. ALIMTA [Suspect]
  2. ZOMETA [Concomitant]

REACTIONS (2)
  - OBLITERATIVE BRONCHIOLITIS [None]
  - PNEUMONIA [None]
